FAERS Safety Report 4526493-7 (Version None)
Quarter: 2004Q4

REPORT INFORMATION
  Report Type: 
  Country: None (occurrence: None)
  Receive Date: 20041214
  Receipt Date: 20041207
  Transmission Date: 20050328
  Serious: Yes (Death)
  Sender: FDA-Public Use
  Company Number: US-BRISTOL-MYERS SQUIBB COMPANY-12788337

PATIENT
  Sex: Female

DRUGS (1)
  1. MEGACE [Suspect]
     Dosage: FORMULATION:  SUSPENSION
     Route: 048

REACTIONS (1)
  - DEATH [None]
